FAERS Safety Report 16843854 (Version 1)
Quarter: 2019Q3

REPORT INFORMATION
  Report Type: Spontaneous
  Country: US (occurrence: US)
  Receive Date: 20190924
  Receipt Date: 20190924
  Transmission Date: 20191005
  Serious: Yes (Other)
  Sender: FDA-Public Use
  Company Number: US-SIGMAPHARM LABORATORIES, LLC-2019SIG00106

PATIENT
  Age: 62 Year
  Sex: Female
  Weight: 70.3 kg

DRUGS (5)
  1. LIOTHYRONINE SODIUM. [Suspect]
     Active Substance: LIOTHYRONINE SODIUM
     Dosage: 5 MCG, 1X/DAY
     Route: 048
  2. LEVOTHYROXINE (AMNEAL/LANNETT) [Suspect]
     Active Substance: LEVOTHYROXINE
     Dosage: UNK, 1X/DAY
     Dates: start: 20190908, end: 20190911
  3. LEVOTHYROXINE (AMNEAL/LANNETT) [Suspect]
     Active Substance: LEVOTHYROXINE
     Dosage: UNK, 1X/DAY
     Dates: start: 20190912
  4. LIOTHYRONINE SODIUM. [Suspect]
     Active Substance: LIOTHYRONINE SODIUM
     Indication: THYROID DISORDER
     Dosage: 5 MCG, 1X/DAY
     Route: 048
     Dates: end: 20190906
  5. LEVOTHYROXINE (AMNEAL/LANNETT) [Suspect]
     Active Substance: LEVOTHYROXINE
     Indication: THYROID DISORDER
     Dosage: UNK, 1X/DAY
     Dates: end: 20190906

REACTIONS (3)
  - Angioedema [Not Recovered/Not Resolved]
  - Intentional dose omission [Recovered/Resolved]
  - Urticaria [Not Recovered/Not Resolved]

NARRATIVE: CASE EVENT DATE: 2019
